FAERS Safety Report 14364678 (Version 1)
Quarter: 2018Q1

REPORT INFORMATION
  Report Type: Spontaneous
  Country: US (occurrence: US)
  Receive Date: 20180107
  Receipt Date: 20180107
  Transmission Date: 20180509
  Serious: Yes (Death)
  Sender: FDA-Public Use
  Company Number: None

PATIENT
  Age: 69 Year
  Sex: Female
  Weight: 100 kg

DRUGS (1)
  1. ALTEPLASE. [Suspect]
     Active Substance: ALTEPLASE
     Indication: ISCHAEMIC STROKE
     Route: 041
     Dates: start: 20171210, end: 20171210

REACTIONS (6)
  - Headache [None]
  - Disorientation [None]
  - Asthenia [None]
  - Vision blurred [None]
  - Hypoaesthesia [None]
  - Cerebral haemorrhage [None]

NARRATIVE: CASE EVENT DATE: 20171210
